FAERS Safety Report 12121997 (Version 1)
Quarter: 2016Q1

REPORT INFORMATION
  Report Type: Spontaneous
  Country: US (occurrence: US)
  Receive Date: 20160226
  Receipt Date: 20160226
  Transmission Date: 20160526
  Serious: No
  Sender: FDA-Public Use
  Company Number: US-ALLERGAN-1510244US

PATIENT
  Age: 86 Year
  Sex: Female
  Weight: 58.96 kg

DRUGS (7)
  1. PRAVASTATIN [Concomitant]
     Active Substance: PRAVASTATIN\PRAVASTATIN SODIUM
     Indication: BLOOD CHOLESTEROL INCREASED
     Dosage: UNK
     Route: 048
  2. REFRESH OPTIVE [Suspect]
     Active Substance: CARBOXYMETHYLCELLULOSE SODIUM\GLYCERIN
     Dosage: UNK
     Route: 047
     Dates: start: 201505, end: 201505
  3. PREVACID [Concomitant]
     Active Substance: LANSOPRAZOLE
     Indication: GASTRIC ULCER
     Dosage: UNK
     Route: 048
  4. REFRESH OPTIVE [Suspect]
     Active Substance: CARBOXYMETHYLCELLULOSE SODIUM\GLYCERIN
     Indication: DRY EYE
     Dosage: UNK
     Route: 047
     Dates: start: 201505, end: 201505
  5. PREMARIN LOW DOSE [Concomitant]
     Indication: OESTROGEN REPLACEMENT THERAPY
  6. ASPIRIN. [Concomitant]
     Active Substance: ASPIRIN
     Indication: CEREBROVASCULAR ACCIDENT
     Dosage: UNK UNK, QD
     Route: 048
  7. L-THYROXINE [Concomitant]
     Active Substance: LEVOTHYROXINE
     Indication: THYROID DISORDER
     Dosage: UNK UNK, QD
     Route: 048

REACTIONS (1)
  - Eye irritation [Recovered/Resolved]

NARRATIVE: CASE EVENT DATE: 201505
